FAERS Safety Report 6766174-2 (Version None)
Quarter: 2010Q2

REPORT INFORMATION
  Report Type: 
  Country: None (occurrence: None)
  Receive Date: 20100611
  Receipt Date: 20100602
  Transmission Date: 20101027
  Serious: Yes (Other)
  Sender: FDA-Public Use
  Company Number: JP-PFIZER INC-2010062204

PATIENT
  Age: 87 Year
  Sex: Male

DRUGS (4)
  1. SELARA [Suspect]
     Dosage: 50 MG, DAILY
     Route: 048
     Dates: start: 20090101
  2. IMIDAPRIL HYDROCHLORIDE [Concomitant]
  3. LASIX [Concomitant]
  4. CEROCRAL [Concomitant]

REACTIONS (1)
  - IRIS ATROPHY [None]
